FAERS Safety Report 14190450 (Version 4)
Quarter: 2018Q1

REPORT INFORMATION
  Report Type: Report from Study
  Country: US (occurrence: US)
  Receive Date: 20171115
  Receipt Date: 20180208
  Transmission Date: 20180508
  Serious: Yes (Hospitalization, Other)
  Sender: FDA-Public Use
  Company Number: US-MALLINCKRODT-T201704213

PATIENT
  Age: 79 Year
  Sex: Female

DRUGS (3)
  1. REPOSITORY CORTICOTROPIN INJECTION [Suspect]
     Active Substance: CORTICOTROPIN
     Indication: NEPHROTIC SYNDROME
     Dosage: 80 UNITS/1 ML, 2 TIMES PER WEEK (MONDAY AND THURSDAY)
     Route: 030
     Dates: start: 20171012, end: 20171103
  2. REPOSITORY CORTICOTROPIN INJECTION [Suspect]
     Active Substance: CORTICOTROPIN
     Indication: PROTEINURIA
  3. REPOSITORY CORTICOTROPIN INJECTION [Suspect]
     Active Substance: CORTICOTROPIN
     Indication: FOCAL SEGMENTAL GLOMERULOSCLEROSIS

REACTIONS (17)
  - Pain [Recovering/Resolving]
  - Peripheral swelling [Not Recovered/Not Resolved]
  - Chronic kidney disease [Unknown]
  - Feeling abnormal [Recovering/Resolving]
  - Drug ineffective [Unknown]
  - Burning sensation [Not Recovered/Not Resolved]
  - Thyroid disorder [Not Recovered/Not Resolved]
  - Malaise [Not Recovered/Not Resolved]
  - Injection site bruising [Not Recovered/Not Resolved]
  - Bedridden [Unknown]
  - Gait disturbance [Recovering/Resolving]
  - Hypoaesthesia [Not Recovered/Not Resolved]
  - Psychomotor hyperactivity [Unknown]
  - Cardiac discomfort [Unknown]
  - Bone pain [Not Recovered/Not Resolved]
  - Neuralgia [Not Recovered/Not Resolved]
  - Hypertension [Recovering/Resolving]

NARRATIVE: CASE EVENT DATE: 20171103
